FAERS Safety Report 12631748 (Version 2)
Quarter: 2016Q3

REPORT INFORMATION
  Report Type: Spontaneous
  Country: US (occurrence: US)
  Receive Date: 20160808
  Receipt Date: 20160808
  Transmission Date: 20161109
  Serious: No
  Sender: FDA-Public Use
  Company Number: US-BEH-2016060887

PATIENT
  Age: 55 Year
  Sex: Female
  Weight: 85 kg

DRUGS (17)
  1. DIPHENHYDRAMINE. [Concomitant]
     Active Substance: DIPHENHYDRAMINE
  2. ZOFRAN [Concomitant]
     Active Substance: ONDANSETRON HYDROCHLORIDE
  3. IMITREX [Concomitant]
     Active Substance: SUMATRIPTAN SUCCINATE
  4. LUNESTA [Concomitant]
     Active Substance: ESZOPICLONE
  5. ALBUTEROL. [Concomitant]
     Active Substance: ALBUTEROL
  6. SOMA [Concomitant]
     Active Substance: CARISOPRODOL
  7. OXYCODONE [Concomitant]
     Active Substance: OXYCODONE
  8. ALEVE [Concomitant]
     Active Substance: NAPROXEN SODIUM
  9. IMITREX [Concomitant]
     Active Substance: SUMATRIPTAN SUCCINATE
  10. PYRIDIUM [Concomitant]
     Active Substance: PHENAZOPYRIDINE
  11. ACETAMINOPHEN. [Concomitant]
     Active Substance: ACETAMINOPHEN
  12. HIZENTRA [Suspect]
     Active Substance: HUMAN IMMUNOGLOBULIN G
     Indication: IMMUNODEFICIENCY COMMON VARIABLE
     Route: 058
  13. SINGULAIR [Concomitant]
     Active Substance: MONTELUKAST SODIUM
  14. VALTREX [Concomitant]
     Active Substance: VALACYCLOVIR HYDROCHLORIDE
  15. EPIPEN [Concomitant]
     Active Substance: EPINEPHRINE
  16. CYMBALTA [Concomitant]
     Active Substance: DULOXETINE HYDROCHLORIDE
  17. VALIUM [Concomitant]
     Active Substance: DIAZEPAM

REACTIONS (3)
  - Headache [Unknown]
  - Adverse drug reaction [Unknown]
  - Pain [Unknown]

NARRATIVE: CASE EVENT DATE: 201512
